FAERS Safety Report 20592093 (Version 1)
Quarter: 2022Q1

REPORT INFORMATION
  Report Type: Spontaneous
  Country: US (occurrence: None)
  Receive Date: 20220314
  Receipt Date: 20220314
  Transmission Date: 20220423
  Serious: No
  Sender: FDA-Public Use
  Company Number: US-ROCHE-2813918

PATIENT
  Sex: Female

DRUGS (24)
  1. XOLAIR [Suspect]
     Active Substance: OMALIZUMAB
     Indication: Asthma
     Dosage: 150 MG VIAL
     Route: 058
  2. XARELTO [Concomitant]
     Active Substance: RIVAROXABAN
  3. VOLTAREN [Concomitant]
     Active Substance: DICLOFENAC SODIUM
  4. RISEDRONATE SODIUM [Concomitant]
     Active Substance: RISEDRONATE SODIUM
  5. ALPRAZOLAM [Concomitant]
     Active Substance: ALPRAZOLAM
  6. BESIVANCE [Concomitant]
     Active Substance: BESIFLOXACIN
  7. DUREZOL [Concomitant]
     Active Substance: DIFLUPREDNATE
  8. DIOVAN [Concomitant]
     Active Substance: VALSARTAN
  9. MECLIZINE HYDROCHLORIDE [Concomitant]
     Active Substance: MECLIZINE HYDROCHLORIDE
  10. FUROSEMIDE [Concomitant]
     Active Substance: FUROSEMIDE
  11. SPIRIVA [Concomitant]
     Active Substance: TIOTROPIUM BROMIDE MONOHYDRATE
  12. CICLOPIROX [Concomitant]
     Active Substance: CICLOPIROX
  13. CLOTRIMAZOLE [Concomitant]
     Active Substance: CLOTRIMAZOLE
  14. BETAMETHASONE [Concomitant]
     Active Substance: BETAMETHASONE
  15. DILTIAZEM [Concomitant]
     Active Substance: DILTIAZEM
  16. ALBUTEROL SULFATE [Concomitant]
     Active Substance: ALBUTEROL SULFATE
  17. FLUOXETINE HYDROCHLORIDE [Concomitant]
     Active Substance: FLUOXETINE HYDROCHLORIDE
  18. IPRATROPIUM BROMIDE [Concomitant]
     Active Substance: IPRATROPIUM BROMIDE
  19. SYMBICORT [Concomitant]
     Active Substance: BUDESONIDE\FORMOTEROL FUMARATE DIHYDRATE
  20. RANITIDINE HYDROCHLORIDE [Concomitant]
     Active Substance: RANITIDINE HYDROCHLORIDE
  21. ACTONEL [Concomitant]
     Active Substance: RISEDRONATE SODIUM
  22. CICLOPIROX [Concomitant]
     Active Substance: CICLOPIROX
  23. PREDNISONE [Concomitant]
     Active Substance: PREDNISONE
  24. MONTELUKAST SODIUM [Concomitant]
     Active Substance: MONTELUKAST SODIUM

REACTIONS (1)
  - Fungal skin infection [Not Recovered/Not Resolved]
